FAERS Safety Report 21239109 (Version 1)
Quarter: 2022Q3

REPORT INFORMATION
  Report Type: Spontaneous
  Country: US (occurrence: US)
  Receive Date: 20220822
  Receipt Date: 20220822
  Transmission Date: 20221027
  Serious: No
  Sender: FDA-Public Use
  Company Number: US-ELI_LILLY_AND_COMPANY-US202208008835

PATIENT
  Sex: Female

DRUGS (4)
  1. HUMULIN N [Suspect]
     Active Substance: INSULIN HUMAN
     Indication: Product used for unknown indication
     Dosage: 32 U, OTHER (AT BEDTIME)
     Route: 065
     Dates: start: 202203
  2. HUMULIN N [Suspect]
     Active Substance: INSULIN HUMAN
     Indication: Product used for unknown indication
     Dosage: 32 U, OTHER (AT BEDTIME)
     Route: 065
     Dates: start: 202203
  3. HUMULIN N [Suspect]
     Active Substance: INSULIN HUMAN
     Dosage: 32 U, OTHER
     Route: 065
  4. HUMULIN N [Suspect]
     Active Substance: INSULIN HUMAN
     Dosage: 32 U, OTHER
     Route: 065

REACTIONS (1)
  - Accidental underdose [Unknown]
